FAERS Safety Report 10159785 (Version 1)
Quarter: 2014Q2

REPORT INFORMATION
  Report Type: Spontaneous
  Country: US (occurrence: US)
  Receive Date: 20140508
  Receipt Date: 20140508
  Transmission Date: 20141212
  Serious: No
  Sender: FDA-Public Use
  Company Number: US-GLAXOSMITHKLINE-A1027842A

PATIENT
  Age: 56 Year
  Sex: Female

DRUGS (14)
  1. TYKERB [Suspect]
     Indication: BREAST CANCER METASTATIC
     Dosage: 1000MG PER DAY
     Route: 048
     Dates: start: 20121023
  2. ASPIRIN [Concomitant]
  3. ATENOLOL [Concomitant]
  4. EXEMESTANE [Concomitant]
  5. FASLODEX [Concomitant]
  6. LASIX [Concomitant]
  7. HERCEPTIN [Concomitant]
  8. LOTEMAX [Concomitant]
  9. METFORMIN [Concomitant]
  10. PLAVIX [Concomitant]
  11. SINGULAIR [Concomitant]
  12. UNKNOWN DRUG [Concomitant]
  13. ZANTAC [Concomitant]
  14. ZOCOR [Concomitant]

REACTIONS (2)
  - Nail disorder [Recovering/Resolving]
  - Diarrhoea [Recovering/Resolving]
